FAERS Safety Report 6692078-X (Version None)
Quarter: 2010Q2

REPORT INFORMATION
  Report Type: 
  Country: None (occurrence: None)
  Receive Date: 20100422
  Receipt Date: 20100416
  Transmission Date: 20101027
  Serious: Yes (Hospitalization)
  Sender: FDA-Public Use
  Company Number: FR-BRISTOL-MYERS SQUIBB COMPANY-15068950

PATIENT
  Age: 80 Year
  Sex: Female

DRUGS (1)
  1. COUMADIN [Suspect]
     Indication: ATRIAL FIBRILLATION
     Dates: end: 20100220

REACTIONS (4)
  - ANAEMIA [None]
  - GASTROINTESTINAL HAEMORRHAGE [None]
  - HYPOPROTHROMBINAEMIA [None]
  - RENAL IMPAIRMENT [None]
